FAERS Safety Report 12745906 (Version 5)
Quarter: 2019Q1

REPORT INFORMATION
  Report Type: Spontaneous
  Country: GB (occurrence: GB)
  Receive Date: 20160915
  Receipt Date: 20190111
  Transmission Date: 20190417
  Serious: Yes (Death, Hospitalization, Other)
  Sender: FDA-Public Use
  Company Number: GB-GLAXOSMITHKLINE-GB2016GSK131382

PATIENT
  Sex: Female

DRUGS (10)
  1. ANDREWS LIVER SALTS [Suspect]
     Active Substance: CITRIC ACID MONOHYDRATE\MAGNESIUM SULFATE\SODIUM BICARBONATE
     Indication: SEIZURE
  2. DILANTIN [Concomitant]
     Active Substance: PHENYTOIN
     Indication: PRODUCT USED FOR UNKNOWN INDICATION
     Dosage: UNK
  3. ANDREWS LIVER SALTS [Suspect]
     Active Substance: CITRIC ACID MONOHYDRATE\MAGNESIUM SULFATE\SODIUM BICARBONATE
     Indication: PROPHYLAXIS
     Dosage: 1 DF, 1D
  4. ZINC. [Concomitant]
     Active Substance: ZINC
     Indication: PRODUCT USED FOR UNKNOWN INDICATION
     Dosage: UNK
  5. EPILIM [Concomitant]
     Active Substance: VALPROATE SODIUM
     Indication: PRODUCT USED FOR UNKNOWN INDICATION
     Dosage: UNK
  6. LAMOTRIGINE. [Suspect]
     Active Substance: LAMOTRIGINE
     Dosage: UNK UNK, BID
     Dates: start: 20160824
  7. SELENIUM [Concomitant]
     Active Substance: SELENIUM
     Indication: PRODUCT USED FOR UNKNOWN INDICATION
     Dosage: UNK
  8. LAMOTRIGINE. [Suspect]
     Active Substance: LAMOTRIGINE
     Indication: SEIZURE
     Dosage: UNK
     Route: 048
     Dates: start: 2010
  9. KEPPRA [Concomitant]
     Active Substance: LEVETIRACETAM
     Indication: PRODUCT USED FOR UNKNOWN INDICATION
     Dosage: UNK
  10. PHENOBARBITAL SODIUM. [Concomitant]
     Active Substance: PHENOBARBITAL SODIUM
     Indication: PRODUCT USED FOR UNKNOWN INDICATION
     Dosage: UNK

REACTIONS (15)
  - Loss of consciousness [Recovering/Resolving]
  - Oesophageal disorder [Unknown]
  - Pallor [Unknown]
  - Confusional state [Unknown]
  - Product complaint [Unknown]
  - Death [Fatal]
  - Product use in unapproved indication [Unknown]
  - Drug ineffective for unapproved indication [Unknown]
  - Tongue discolouration [Recovered/Resolved]
  - Ill-defined disorder [Recovering/Resolving]
  - Throat lesion [Recovered/Resolved]
  - Seizure [Recovered/Resolved]
  - Swollen tongue [Recovered/Resolved]
  - Amnesia [Unknown]
  - Off label use [Unknown]
